FAERS Safety Report 12348244 (Version 1)
Quarter: 2016Q2

REPORT INFORMATION
  Report Type: Spontaneous
  Country: JP (occurrence: JP)
  Receive Date: 20160509
  Receipt Date: 20160509
  Transmission Date: 20160815
  Serious: Yes (Other)
  Sender: FDA-Public Use
  Company Number: JP-PFIZER INC-2016203653

PATIENT
  Age: 90 Year
  Sex: Female

DRUGS (1)
  1. CEFOPERAZONE SODIUM [Suspect]
     Active Substance: CEFOPERAZONE SODIUM
     Indication: BILIARY TRACT INFECTION
     Dosage: 2-4 G DAILY

REACTIONS (4)
  - Haemorrhage [Recovering/Resolving]
  - Prothrombin time prolonged [Recovering/Resolving]
  - Vitamin K deficiency [Recovering/Resolving]
  - Melaena [Recovering/Resolving]
